FAERS Safety Report 10438425 (Version 4)
Quarter: 2015Q1

REPORT INFORMATION
  Report Type: Spontaneous
  Country: GB (occurrence: GB)
  Receive Date: 20140908
  Receipt Date: 20150225
  Transmission Date: 20150720
  Serious: Yes (Hospitalization, Other)
  Sender: FDA-Public Use
  Company Number: PHFR2014GB005915

PATIENT
  Age: 49 Year
  Sex: Male

DRUGS (7)
  1. SODIUM VALPROATE [Concomitant]
     Active Substance: VALPROATE SODIUM
     Indication: AFFECTIVE DISORDER
     Dosage: 600 MG, QD
     Route: 048
     Dates: start: 2005
  2. FOLIC ACID. [Concomitant]
     Active Substance: FOLIC ACID
     Indication: PRODUCT USED FOR UNKNOWN INDICATION
     Dosage: 5 MG, QD
     Route: 065
  3. PAROXETINE [Concomitant]
     Active Substance: PAROXETINE\PAROXETINE HYDROCHLORIDE
     Indication: AFFECTIVE DISORDER
     Dosage: 20 MG, QD
     Route: 048
     Dates: start: 2005
  4. CLOZARIL [Suspect]
     Active Substance: CLOZAPINE
     Dosage: 300 MG, QD
     Route: 048
  5. RISPERIDONE. [Concomitant]
     Active Substance: RISPERIDONE
     Indication: PRODUCT USED FOR UNKNOWN INDICATION
     Dosage: 8 MG, QD
     Route: 065
     Dates: start: 2005
  6. BISOPROLOL [Concomitant]
     Active Substance: BISOPROLOL
     Indication: TACHYCARDIA
     Dosage: 5 MG, QD
     Route: 048
  7. CLOZARIL [Suspect]
     Active Substance: CLOZAPINE
     Indication: SCHIZOPHRENIA
     Dosage: UNK
     Route: 048
     Dates: start: 20140721

REACTIONS (8)
  - White blood cell count increased [Unknown]
  - Neutrophil count increased [Unknown]
  - Syncope [Recovering/Resolving]
  - Bundle branch block right [Unknown]
  - Orthostatic hypotension [Recovering/Resolving]
  - Fibula fracture [Recovered/Resolved]
  - Fall [Recovered/Resolved]
  - QRS axis abnormal [Unknown]

NARRATIVE: CASE EVENT DATE: 20140806
